FAERS Safety Report 10031862 (Version 1)
Quarter: 2014Q1

REPORT INFORMATION
  Report Type: Report from Study
  Country: US (occurrence: US)
  Receive Date: 20140324
  Receipt Date: 20140324
  Transmission Date: 20141002
  Serious: Yes (Other)
  Sender: FDA-Public Use
  Company Number: US-ROCHE-1368428

PATIENT
  Sex: Female
  Weight: 36.3 kg

DRUGS (1)
  1. PERJETA [Suspect]
     Indication: BREAST CANCER
     Route: 042
     Dates: start: 20121030, end: 20140219

REACTIONS (1)
  - Peptic ulcer [Unknown]
